FAERS Safety Report 7376830-3 (Version None)
Quarter: 2011Q1

REPORT INFORMATION
  Report Type: 
  Country: None (occurrence: None)
  Receive Date: 20110325
  Receipt Date: 20110321
  Transmission Date: 20110831
  Serious: Yes (Hospitalization)
  Sender: FDA-Public Use
  Company Number: FR-MERCK-1103FRA00117

PATIENT
  Age: 61 Year
  Sex: Male

DRUGS (11)
  1. COSOPT [Suspect]
     Route: 047
     Dates: start: 20101101, end: 20110121
  2. TRAVOPROST [Concomitant]
     Route: 047
     Dates: start: 20101101
  3. DORZOLAMIDE HYDROCHLORIDE [Suspect]
     Route: 047
     Dates: start: 20101101, end: 20110121
  4. DEXAMETHASONE AND TOBRAMYCIN [Suspect]
     Route: 047
     Dates: start: 20101224
  5. CEFTRIAXONE SODIUM [Concomitant]
     Route: 042
     Dates: start: 20101217, end: 20101220
  6. GENTAMICIN [Concomitant]
     Route: 042
     Dates: start: 20101217, end: 20101220
  7. ACETAZOLAMIDE [Suspect]
     Route: 048
     Dates: start: 20101123, end: 20101223
  8. ACETAMINOPHEN [Concomitant]
     Route: 048
  9. SODIUM POLYSTYRENE SULFONATE [Concomitant]
     Route: 048
     Dates: end: 20101224
  10. ANESTHETIC (UNSPECIFIED) [Suspect]
     Indication: EYE OPERATION
     Route: 065
     Dates: start: 20101101
  11. DEXAMETHASONE AND TOBRAMYCIN [Suspect]
     Route: 047
     Dates: start: 20101126, end: 20101220

REACTIONS (2)
  - DRUG RASH WITH EOSINOPHILIA AND SYSTEMIC SYMPTOMS [None]
  - CONJUNCTIVITIS [None]
